FAERS Safety Report 8814687 (Version 2)
Quarter: 2012Q4

REPORT INFORMATION
  Report Type: Spontaneous
  Country: US (occurrence: None)
  Receive Date: 20120926
  Receipt Date: 20121001
  Transmission Date: 20130627
  Serious: Yes (Death, Hospitalization, Other)
  Sender: FDA-Public Use
  Company Number: SAN_00507_2012

PATIENT
  Age: 56 Year
  Sex: Male

DRUGS (5)
  1. METFORMIN [Suspect]
     Indication: TYPE 2 DIABETES MELLITUS
     Dates: start: 200611, end: 200611
  2. PANTOPRAZOLE [Concomitant]
  3. LEVOTHYROXINE [Concomitant]
  4. GLYBURIDE [Concomitant]
  5. CIPROFLOXACIN [Concomitant]

REACTIONS (24)
  - Shock [None]
  - Coombs positive haemolytic anaemia [None]
  - Palpitations [None]
  - Dyspnoea [None]
  - Restlessness [None]
  - Haematuria [None]
  - Anaemia [None]
  - Urinary tract infection [None]
  - Respiratory distress [None]
  - Jaundice [None]
  - Dyspnoea exertional [None]
  - Lethargy [None]
  - Bone pain [None]
  - Leukocytosis [None]
  - Renal failure acute [None]
  - Troponin I increased [None]
  - Aspartate aminotransferase increased [None]
  - Alanine aminotransferase increased [None]
  - Agitation [None]
  - Abdominal pain [None]
  - Cardio-respiratory arrest [None]
  - Pulseless electrical activity [None]
  - Hyperkalaemia [None]
  - Metabolic acidosis [None]
